FAERS Safety Report 21211314 (Version 1)
Quarter: 2022Q3

REPORT INFORMATION
  Report Type: Spontaneous
  Country: US (occurrence: None)
  Receive Date: 20220812
  Receipt Date: 20220812
  Transmission Date: 20221027
  Serious: No
  Sender: FDA-Public Use
  Company Number: None

PATIENT
  Sex: Female

DRUGS (1)
  1. STELARA [Suspect]
     Active Substance: USTEKINUMAB
     Indication: Irritable bowel syndrome
     Dosage: FREQUENCY : MONTHLY;?
     Route: 058
     Dates: start: 20211112

REACTIONS (3)
  - Dyspepsia [None]
  - Disease recurrence [None]
  - Disease progression [None]
